FAERS Safety Report 18951794 (Version 1)
Quarter: 2021Q1

REPORT INFORMATION
  Report Type: Spontaneous
  Country: CA (occurrence: CA)
  Receive Date: 20210301
  Receipt Date: 20210301
  Transmission Date: 20210420
  Serious: Yes (Other)
  Sender: FDA-Public Use
  Company Number: CA-JNJFOC-20210241938

PATIENT
  Age: 52 Year
  Sex: Female

DRUGS (10)
  1. PERINDOPRIL [Concomitant]
     Active Substance: PERINDOPRIL
     Route: 065
  2. DULOXETINE. [Concomitant]
     Active Substance: DULOXETINE
     Route: 065
  3. CELEBREX [Concomitant]
     Active Substance: CELECOXIB
     Route: 065
  4. TYLENOL [Concomitant]
     Active Substance: ACETAMINOPHEN
     Route: 065
  5. PANTOLOC [PANTOPRAZOLE] [Concomitant]
     Active Substance: PANTOPRAZOLE SODIUM
     Route: 065
  6. ALLOPURINOL. [Concomitant]
     Active Substance: ALLOPURINOL
     Route: 065
  7. LYRICA [Concomitant]
     Active Substance: PREGABALIN
     Route: 065
  8. GRAVOL [Concomitant]
     Active Substance: DIMENHYDRINATE
  9. REMICADE [Suspect]
     Active Substance: INFLIXIMAB
     Indication: PSORIATIC ARTHROPATHY
     Route: 042
  10. TYLENOL [Concomitant]
     Active Substance: ACETAMINOPHEN
     Route: 065

REACTIONS (13)
  - Oropharyngeal pain [Recovered/Resolved]
  - Drug intolerance [Recovered/Resolved]
  - Headache [Recovered/Resolved]
  - Inappropriate schedule of product administration [Recovered/Resolved]
  - Blood pressure fluctuation [Recovered/Resolved]
  - Dizziness [Recovered/Resolved]
  - Weight increased [Recovered/Resolved]
  - Fatigue [Recovered/Resolved]
  - Neuropathy peripheral [Recovered/Resolved]
  - Vision blurred [Recovered/Resolved]
  - Dysphagia [Recovered/Resolved]
  - Abdominal pain [Recovered/Resolved]
  - Oral herpes [Recovered/Resolved]
